FAERS Safety Report 15122606 (Version 2)
Quarter: 2018Q3

REPORT INFORMATION
  Report Type: Report from Study
  Country: US (occurrence: US)
  Receive Date: 20180709
  Receipt Date: 20180720
  Transmission Date: 20181010
  Serious: Yes (Hospitalization, Other)
  Sender: FDA-Public Use
  Company Number: US-PURDUE PHARMA-USA-2018-0144075

PATIENT
  Sex: Female

DRUGS (1)
  1. OXYCODONE HYDROCHLORIDE. [Suspect]
     Active Substance: OXYCODONE HYDROCHLORIDE
     Indication: ACCIDENT AT WORK
     Dosage: 40 MG, BID
     Route: 048
     Dates: start: 2013

REACTIONS (2)
  - Addison^s disease [Unknown]
  - Abdominal pain [Unknown]
